FAERS Safety Report 8570579-7 (Version None)
Quarter: 2012Q3

REPORT INFORMATION
  Report Type: 
  Country: None (occurrence: None)
  Receive Date: 20120804
  Receipt Date: 20120728
  Transmission Date: 20120928
  Serious: Yes (Other)
  Sender: FDA-Public Use
  Company Number: US-009507513-1208USA000244

PATIENT

DRUGS (3)
  1. VICTRELIS [Suspect]
     Indication: HEPATITIS C
     Dosage: UNK
     Dates: start: 20120607
  2. PEG-INTRON [Suspect]
     Indication: HEPATITIS C
     Dosage: UNK
     Dates: start: 20120509
  3. REBETOL [Suspect]
     Indication: HEPATITIS C
     Dosage: UNK
     Dates: start: 20120509

REACTIONS (14)
  - CONTUSION [None]
  - FATIGUE [None]
  - NAUSEA [None]
  - CONVULSION [None]
  - HEAD DISCOMFORT [None]
  - BACK PAIN [None]
  - TREMOR [None]
  - LOSS OF CONSCIOUSNESS [None]
  - DIZZINESS [None]
  - EYE PAIN [None]
  - ABDOMINAL PAIN UPPER [None]
  - FALL [None]
  - BLOOD CREATININE INCREASED [None]
  - HYPOTENSION [None]
